FAERS Safety Report 4504340-7 (Version None)
Quarter: 2004Q4

REPORT INFORMATION
  Report Type: 
  Country: None (occurrence: None)
  Receive Date: 20041115
  Receipt Date: 20041031
  Transmission Date: 20050328
  Serious: Yes (Other)
  Sender: FDA-Public Use
  Company Number: 2004086461

PATIENT
  Age: 19 Year
  Sex: Male
  Weight: 83.9154 kg

DRUGS (11)
  1. VISTARIL [Suspect]
     Indication: PREOPERATIVE CARE
     Dosage: 50 MG
     Dates: start: 19710101
  2. CELECOXIB (CELECOXIB) [Suspect]
     Indication: PAIN
     Dosage: 2 IN 1 D, ORAL
     Route: 048
     Dates: start: 20040901, end: 20040101
  3. MEPERIDINE HYDROCHLORIDE [Suspect]
     Indication: PREOPERATIVE CARE
     Dates: start: 19710101
  4. MORPHINE SULFATE [Concomitant]
  5. DIAZEPAM [Concomitant]
  6. TEMAZEPAM [Concomitant]
  7. ALLEGRA-D (FEXOFENADINE, PSEUDOEPHEDRINE) [Concomitant]
  8. PRIMIDONE [Concomitant]
  9. PHENYTOIN SODIUM [Concomitant]
  10. TETRACYCLINE [Concomitant]
  11. CALCIUM [Concomitant]

REACTIONS (13)
  - DRUG HYPERSENSITIVITY [None]
  - EPILEPSY [None]
  - FACE INJURY [None]
  - GRAND MAL CONVULSION [None]
  - IRRITABILITY [None]
  - PAIN [None]
  - RASH ERYTHEMATOUS [None]
  - RASH MACULAR [None]
  - SPINAL FRACTURE [None]
  - TENDERNESS [None]
  - TENSION [None]
  - UNEVALUABLE EVENT [None]
  - VICTIM OF CRIME [None]
